FAERS Safety Report 22941501 (Version 3)
Quarter: 2023Q4

REPORT INFORMATION
  Report Type: Spontaneous
  Country: JP (occurrence: JP)
  Receive Date: 20230914
  Receipt Date: 20231228
  Transmission Date: 20240110
  Serious: Yes (Disabling, Other)
  Sender: FDA-Public Use
  Company Number: JP-MSD-M2023-32434

PATIENT
  Age: 70 Year
  Sex: Male

DRUGS (1)
  1. KEYTRUDA [Suspect]
     Active Substance: PEMBROLIZUMAB
     Indication: Oesophageal carcinoma
     Dosage: 200 MILLIGRAM, Q3W
     Route: 041
     Dates: start: 20230724, end: 2023

REACTIONS (6)
  - Cerebral infarction [Recovered/Resolved]
  - Cerebral haemorrhage [Recovered/Resolved]
  - Thrombophlebitis migrans [Recovered/Resolved]
  - Malignant neoplasm progression [Unknown]
  - Decreased appetite [Recovered/Resolved]
  - Stomatitis [Recovered/Resolved]

NARRATIVE: CASE EVENT DATE: 20230101
